FAERS Safety Report 9205976 (Version 2)
Quarter: 2013Q2

REPORT INFORMATION
  Report Type: Spontaneous
  Country: GB (occurrence: GB)
  Receive Date: 20130403
  Receipt Date: 20130415
  Transmission Date: 20140414
  Serious: Yes (Death)
  Sender: FDA-Public Use
  Company Number: GB-GENZYME-CERZ-1002878

PATIENT
  Sex: Male

DRUGS (4)
  1. CEREZYME [Suspect]
     Indication: GAUCHER^S DISEASE
     Dosage: 800 U, Q2W
     Route: 042
     Dates: start: 2007, end: 20130326
  2. NORMAL SALINE [Concomitant]
     Indication: PRODUCT USED FOR UNKNOWN INDICATION
     Dosage: 80 ML, UNK
     Route: 065
     Dates: end: 20130326
  3. NORMAL SALINE [Concomitant]
     Dosage: 10 ML, UNK
     Route: 065
     Dates: end: 20130326
  4. WATER FOR INJECTION [Concomitant]
     Indication: PRODUCT USED FOR UNKNOWN INDICATION
     Dosage: 20 ML, UNK
     Route: 065
     Dates: end: 20130326

REACTIONS (1)
  - Death [Fatal]
